FAERS Safety Report 7496099-9 (Version None)
Quarter: 2011Q2

REPORT INFORMATION
  Report Type: 
  Country: None (occurrence: None)
  Receive Date: 20110520
  Receipt Date: 20110520
  Transmission Date: 20111010
  Serious: No
  Sender: FDA-Public Use
  Company Number: None

PATIENT
  Sex: Male

DRUGS (2)
  1. CLONIDINE [Suspect]
     Dosage: 0.1 MG TID ORAL
     Route: 048
     Dates: start: 20060101
  2. CLONIDINE [Suspect]
     Dosage: 0.1 MG TID ORAL
     Route: 048
     Dates: start: 20040101

REACTIONS (3)
  - PRODUCT SUBSTITUTION ISSUE [None]
  - DRUG INEFFECTIVE [None]
  - MALAISE [None]
